FAERS Safety Report 6247530-8 (Version None)
Quarter: 2009Q2

REPORT INFORMATION
  Report Type: 
  Country: None (occurrence: None)
  Receive Date: 20090626
  Receipt Date: 20090616
  Transmission Date: 20091009
  Serious: Yes (Other)
  Sender: FDA-Public Use
  Company Number: US-TYCO HEALTHCARE/MALLINCKRODT-T200901240

PATIENT
  Sex: Female

DRUGS (12)
  1. OPTIMARK [Suspect]
     Indication: ANGIOGRAM
     Dosage: UNK
     Dates: start: 20050129, end: 20050129
  2. OPTIMARK [Suspect]
     Indication: VENOGRAM
  3. NORVASC [Concomitant]
     Dosage: 10 MG, BID
  4. SENSIPAR [Concomitant]
     Dosage: 60 MG, BID
  5. ENALAPRIL [Concomitant]
     Dosage: 40 MG, BID
  6. RENAGEL                            /01459901/ [Concomitant]
     Dosage: 800 MG, W/ SNACKS AND 2 W/ MEALS
  7. NEPHRO [Concomitant]
     Dosage: 1 CAN BID
  8. EXCEDRIN                           /00214201/ [Concomitant]
     Indication: HEADACHE
     Dosage: 2 TABS Q 4 HRS PRN
  9. RENAL [Concomitant]
     Dosage: 1 QD
  10. EPOGEN [Concomitant]
     Dosage: 3 X WEEK
  11. FERRLECIT                          /00345601/ [Concomitant]
     Dosage: 1 X WEEK
  12. MULTIVITAMIN                       /01229101/ [Concomitant]
     Dosage: OD

REACTIONS (1)
  - NEPHROGENIC SYSTEMIC FIBROSIS [None]
